FAERS Safety Report 5287450-9 (Version None)
Quarter: 2007Q1

REPORT INFORMATION
  Report Type: 
  Country: None (occurrence: None)
  Receive Date: 20070116
  Receipt Date: 20060926
  Transmission Date: 20070707
  Serious: No
  Sender: FDA-Public Use
  Company Number: 2006SP003423

PATIENT
  Age: 72 Year
  Sex: Female
  Weight: 68.0396 kg

DRUGS (3)
  1. LUNESTA [Suspect]
     Indication: INSOMNIA
     Dosage: 2 MG 1X ORAL
     Route: 048
     Dates: start: 20060925, end: 20060925
  2. SYNTHROID [Concomitant]
  3. SIMVASTATIN [Concomitant]

REACTIONS (1)
  - PARADOXICAL DRUG REACTION [None]
